FAERS Safety Report 17164040 (Version 1)
Quarter: 2019Q4

REPORT INFORMATION
  Report Type: Spontaneous
  Country: US (occurrence: US)
  Receive Date: 20191125
  Receipt Date: 20191125
  Transmission Date: 20200122
  Serious: Yes (Hospitalization)
  Sender: FDA-Public Use
  Company Number: None

PATIENT
  Age: 40 Year
  Sex: Female

DRUGS (17)
  1. COREG [Concomitant]
     Active Substance: CARVEDILOL
  2. COD LIVER OIL [Concomitant]
     Active Substance: COD LIVER OIL
  3. LISINOPRIL. [Concomitant]
     Active Substance: LISINOPRIL
  4. TIZANIDINE. [Concomitant]
     Active Substance: TIZANIDINE
  5. EMGALITY [Suspect]
     Active Substance: GALCANEZUMAB-GNLM
     Indication: MULTIPLE SCLEROSIS
     Route: 058
     Dates: start: 20191003
  6. BENADRYL [Concomitant]
     Active Substance: DIPHENHYDRAMINE HYDROCHLORIDE
  7. LAMICTAL [Concomitant]
     Active Substance: LAMOTRIGINE
  8. REGLAN [Concomitant]
     Active Substance: METOCLOPRAMIDE HYDROCHLORIDE
  9. ACETAZOLAMID [Concomitant]
     Active Substance: ACETAZOLAMIDE
  10. LOMOTIL [Concomitant]
     Active Substance: ATROPINE SULFATE\DIPHENOXYLATE HYDROCHLORIDE
  11. PREDNISONE. [Concomitant]
     Active Substance: PREDNISONE
  12. CHLORZOXAZON [Concomitant]
  13. DOXYLAMINE POW SUCCINAT [Concomitant]
  14. ISORDIL [Concomitant]
     Active Substance: ISOSORBIDE DINITRATE
  15. PERCOCET [Concomitant]
     Active Substance: ACETAMINOPHEN\OXYCODONE HYDROCHLORIDE
  16. MANNITOL POW [Concomitant]
  17. TRAZODONE [Concomitant]
     Active Substance: TRAZODONE HYDROCHLORIDE

REACTIONS (1)
  - Surgery [None]

NARRATIVE: CASE EVENT DATE: 2019
